FAERS Safety Report 5280196-2 (Version None)
Quarter: 2007Q1

REPORT INFORMATION
  Report Type: 
  Country: None (occurrence: None)
  Receive Date: 20070329
  Receipt Date: 20070321
  Transmission Date: 20070707
  Serious: Yes (Hospitalization)
  Sender: FDA-Public Use
  Company Number: FR-AVENTIS-200711057FR

PATIENT
  Age: 73 Year
  Sex: Male

DRUGS (3)
  1. GLYBURIDE [Suspect]
     Route: 048
  2. PRAVASTATIN [Suspect]
     Route: 048
  3. AVANDAMET [Suspect]
     Route: 048
     Dates: start: 20061101, end: 20070211

REACTIONS (4)
  - ASCITES [None]
  - FLUID RETENTION [None]
  - OEDEMA PERIPHERAL [None]
  - WEIGHT INCREASED [None]
